FAERS Safety Report 8566493 (Version 6)
Quarter: 2012Q4

REPORT INFORMATION
  Report Type: 
  Country: US (occurrence: US)
  Receive Date: 20120517
  Receipt Date: 20121121
  Transmission Date: 20130627
  Serious: Yes (Hospitalization)
  Sender: FDA-Public Use
  Company Number: US-ASTRAZENECA-2011SE41437

PATIENT
  Age: 63 Year
  Sex: Female

DRUGS (30)
  1. NEXIUM [Suspect]
     Indication: GASTROOESOPHAGEAL REFLUX DISEASE
     Route: 048
     Dates: start: 2001, end: 201106
  2. NEXIUM [Suspect]
     Indication: GASTROOESOPHAGEAL REFLUX DISEASE
     Route: 048
     Dates: start: 2005, end: 201105
  3. NEXIUM [Suspect]
     Indication: GASTROOESOPHAGEAL REFLUX DISEASE
     Route: 048
     Dates: start: 20090806
  4. NEXIUM [Suspect]
     Indication: GASTROOESOPHAGEAL REFLUX DISEASE
     Route: 048
  5. PREVACID [Concomitant]
  6. LOSARTA [Concomitant]
     Indication: HYPERTENSION
  7. AMLOPIDI [Concomitant]
     Indication: HYPERTENSION
     Dates: start: 20091130
  8. HYDROCODONE [Concomitant]
     Indication: PAIN
     Dosage: 5-500 MG
  9. HYDROCODONE [Concomitant]
     Indication: PAIN
     Dosage: 5-500 MG TABLETS ONE FOUR TIMES A DAY
     Dates: start: 20080415
  10. HYDROCODONE [Concomitant]
     Indication: PAIN
     Dates: start: 20090804
  11. HYZAAR [Concomitant]
     Dates: start: 20090803
  12. HYZAAR [Concomitant]
     Dosage: 50/12.5 MG TABLETS DAILY
     Dates: start: 20080415
  13. AMBIEN CR [Concomitant]
     Dates: start: 20080415
  14. AMBIEN CR [Concomitant]
     Dosage: 12.5 MG
     Dates: start: 20090804
  15. AMBIEN CR [Concomitant]
  16. LISINOPRIL [Concomitant]
  17. VICODIN [Concomitant]
     Indication: PAIN
     Dosage: 5 TO 500 MG I BID
  18. VICODIN [Concomitant]
     Indication: PAIN
     Dosage: 5-500 MG TWO TIMES A DAY
  19. VICODIN [Concomitant]
     Indication: PAIN
     Dosage: 5-500 MG AS REQUIRED
  20. VICODIN [Concomitant]
     Indication: PAIN
     Dates: start: 20080415
  21. DIOVAN [Concomitant]
  22. ASPIRIN [Concomitant]
  23. LOSARTAN PATASSIUM [Concomitant]
     Route: 048
  24. AMLODIPINE BESYLATE [Concomitant]
  25. HYDROCHLOROTHIAZIDE [Concomitant]
  26. ZOLPIDEM TARTRATE [Concomitant]
  27. GLIPIZIDE [Concomitant]
     Dates: start: 20080415
  28. CITALOPRAM [Concomitant]
     Dosage: 1 DAILY
     Dates: start: 20080415
  29. ATIVAN [Concomitant]
     Dates: start: 20080415
  30. TOPROL [Concomitant]
     Dates: start: 20080415

REACTIONS (17)
  - Tooth abscess [Unknown]
  - Oral infection [Unknown]
  - Osteoporosis [Unknown]
  - Rib fracture [Unknown]
  - Accident at work [Unknown]
  - Cough [Unknown]
  - Joint injury [Unknown]
  - Post-traumatic stress disorder [Unknown]
  - Anxiety [Unknown]
  - Emotional distress [Unknown]
  - Pain [Unknown]
  - Multiple fractures [Unknown]
  - Vitamin D deficiency [Unknown]
  - Osteomalacia [Unknown]
  - Vomiting [Unknown]
  - Arthralgia [Unknown]
  - Depression [Unknown]
